FAERS Safety Report 6821204-4 (Version None)
Quarter: 2010Q2

REPORT INFORMATION
  Report Type: 
  Country: None (occurrence: None)
  Receive Date: 20100630
  Receipt Date: 20100616
  Transmission Date: 20101027
  Serious: Yes (Other)
  Sender: FDA-Public Use
  Company Number: MPS1-1000337

PATIENT
  Age: 36 Year
  Sex: Female
  Weight: 50 kg

DRUGS (11)
  1. ALDURAZYME [Suspect]
     Indication: MUCOPOLYSACCHARIDOSIS I
     Dosage: 0.58 MG/KG, 1X/W, INTRAVENOUS
     Route: 042
     Dates: start: 20031114
  2. ALDURAZYME [Suspect]
  3. ALDURAZYME [Suspect]
  4. PANWARFIN (WARFARIN SODIUM) [Concomitant]
  5. FRUMIL (AMILORIDE HYDROCHLORIDE, FUROSEMIDE) [Concomitant]
  6. LOPRESSOR [Concomitant]
  7. ZIRTEK (CETIRIZINE HYDROCHLORIDE) [Concomitant]
  8. FENISTIL (DIMETINDENE MALEATE) [Concomitant]
  9. ALDURAZYME [Suspect]
  10. ALDURAZYME [Suspect]
  11. ALDURAZYME [Suspect]

REACTIONS (2)
  - INFLUENZA [None]
  - URINARY GLYCOSAMINOGLYCANS INCREASED [None]
